FAERS Safety Report 6581374-2 (Version None)
Quarter: 2010Q1

REPORT INFORMATION
  Report Type: 
  Country: None (occurrence: None)
  Receive Date: 20100215
  Receipt Date: 20100209
  Transmission Date: 20100710
  Serious: Yes (Other)
  Sender: FDA-Public Use
  Company Number: US-RB-002689-08

PATIENT
  Sex: Female
  Weight: 65.7 kg

DRUGS (5)
  1. SUBUTEX [Suspect]
     Route: 060
     Dates: start: 20080725
  2. SUBOXONE [Suspect]
     Route: 060
     Dates: start: 20080417, end: 20080724
  3. XANAX [Concomitant]
     Indication: ANXIETY
     Route: 048
  4. CELEXA [Concomitant]
     Indication: DEPRESSION
     Route: 048
  5. LAMICTAL [Concomitant]
     Indication: BIPOLAR DISORDER
     Route: 048

REACTIONS (2)
  - ABORTION SPONTANEOUS [None]
  - DRUG EXPOSURE DURING PREGNANCY [None]
